FAERS Safety Report 7058001-3 (Version None)
Quarter: 2010Q4

REPORT INFORMATION
  Report Type: 
  Country: None (occurrence: None)
  Receive Date: 20101022
  Receipt Date: 20101008
  Transmission Date: 20110411
  Serious: Yes (Hospitalization, Other)
  Sender: FDA-Public Use
  Company Number: PHHY2010JP42387

PATIENT
  Sex: Male

DRUGS (6)
  1. TASIGNA [Suspect]
     Indication: CHRONIC MYELOID LEUKAEMIA
     Dosage: 400 MG DAILY
     Route: 048
     Dates: start: 20090604, end: 20091020
  2. PREDNISOLONE [Concomitant]
     Dosage: 7.5MG
     Route: 048
     Dates: start: 20090604
  3. HERBESSER [Concomitant]
     Dosage: 60MG
     Route: 048
     Dates: start: 20090604
  4. 8-HOUR BAYER [Concomitant]
     Dosage: 100MG
     Route: 048
     Dates: start: 20090604
  5. OMEPRAL [Concomitant]
     Dosage: 10MG
     Route: 048
     Dates: start: 20090604
  6. MUCOSTA [Concomitant]
     Dosage: 100MG
     Route: 048
     Dates: start: 20090604

REACTIONS (2)
  - GASTRIC CANCER RECURRENT [None]
  - NEOPLASM MALIGNANT [None]
